FAERS Safety Report 19642982 (Version 1)
Quarter: 2021Q3

REPORT INFORMATION
  Report Type: Spontaneous
  Country: HK (occurrence: HK)
  Receive Date: 20210731
  Receipt Date: 20210731
  Transmission Date: 20211014
  Serious: Yes (Other)
  Sender: FDA-Public Use
  Company Number: NVSC2021HK164659

PATIENT
  Sex: Female

DRUGS (2)
  1. NITRODERM [Suspect]
     Active Substance: NITROGLYCERIN
     Indication: PRODUCT USED FOR UNKNOWN INDICATION
     Dosage: 10 MG
     Route: 065
  2. NITRODERM [Suspect]
     Active Substance: NITROGLYCERIN
     Dosage: 5 MG
     Route: 065

REACTIONS (3)
  - Renal impairment [Unknown]
  - Asthenia [Unknown]
  - Drug ineffective [Unknown]
